FAERS Safety Report 22779192 (Version 4)
Quarter: 2024Q1

REPORT INFORMATION
  Report Type: Spontaneous
  Country: US (occurrence: US)
  Receive Date: 20230802
  Receipt Date: 20240307
  Transmission Date: 20240410
  Serious: No
  Sender: FDA-Public Use
  Company Number: US-PFIZER INC-PV202300117148

PATIENT
  Age: 73 Year
  Sex: Female

DRUGS (2)
  1. MEKTOVI [Suspect]
     Active Substance: BINIMETINIB
     Indication: Malignant melanoma
     Dosage: TAKE 3 TABLETS DAILY WITH OR WITHOUT FOOD
     Route: 048
  2. BRAFTOVI [Suspect]
     Active Substance: ENCORAFENIB
     Indication: Malignant melanoma
     Dosage: TAKE 6 TABLETS DAILY WITH OR WITHOUT FOOD
     Route: 048

REACTIONS (2)
  - Pyrexia [Not Recovered/Not Resolved]
  - Off label use [Unknown]
